FAERS Safety Report 25862340 (Version 1)
Quarter: 2025Q3

REPORT INFORMATION
  Report Type: Spontaneous
  Country: US (occurrence: US)
  Receive Date: 20250930
  Receipt Date: 20250930
  Transmission Date: 20251021
  Serious: No
  Sender: MERCK SHARP & DOHME LLC
  Company Number: US-009507513-2331128

PATIENT
  Sex: Male

DRUGS (2)
  1. BELSOMRA [Suspect]
     Active Substance: SUVOREXANT
     Indication: Insomnia
     Dosage: LAST COUPLE WEEKS
     Route: 048
     Dates: start: 2025
  2. BELSOMRA [Suspect]
     Active Substance: SUVOREXANT
     Indication: Insomnia
     Dosage: 3-4 MONTHS MAYBE
     Route: 048
     Dates: start: 202505

REACTIONS (2)
  - Therapeutic product effect decreased [Unknown]
  - Recalled product administered [Unknown]

NARRATIVE: CASE EVENT DATE: 20250101
